FAERS Safety Report 16789851 (Version 3)
Quarter: 2020Q1

REPORT INFORMATION
  Report Type: Spontaneous
  Country: NL (occurrence: NL)
  Receive Date: 20190910
  Receipt Date: 20200204
  Transmission Date: 20200409
  Serious: Yes (Death, Hospitalization, Other)
  Sender: FDA-Public Use
  Company Number: NL-JNJFOC-20190839151

PATIENT
  Sex: Female

DRUGS (2)
  1. ERDAFITINIB. [Suspect]
     Active Substance: ERDAFITINIB
     Route: 048
  2. ERDAFITINIB. [Suspect]
     Active Substance: ERDAFITINIB
     Indication: BLADDER CANCER
     Route: 048

REACTIONS (5)
  - Ileus [Not Recovered/Not Resolved]
  - Hyperphosphataemia [Unknown]
  - Mucosal inflammation [Not Recovered/Not Resolved]
  - Disease progression [Fatal]
  - Vomiting [Unknown]
